FAERS Safety Report 8728912 (Version 2)
Quarter: 2012Q4

REPORT INFORMATION
  Report Type: 
  Country: US (occurrence: US)
  Receive Date: 20120817
  Receipt Date: 20120911
  Transmission Date: 20130627
  Serious: Yes (Other)
  Sender: FDA-Public Use
  Company Number: US-PFIZER INC-2012197721

PATIENT
  Age: 65 Year
  Sex: Female
  Weight: 83.9 kg

DRUGS (3)
  1. LYRICA [Suspect]
     Indication: NEUROPATHY PERIPHERAL
     Dosage: 100 mg, 3x/day
     Route: 048
  2. PROZAC [Concomitant]
     Dosage: UNK
  3. PRENTAL [Concomitant]
     Dosage: UNK

REACTIONS (7)
  - Gastric disorder [Recovered/Resolved]
  - Diabetes mellitus [Unknown]
  - Rotator cuff syndrome [Recovering/Resolving]
  - Muscle rupture [Recovering/Resolving]
  - Tendon rupture [Recovering/Resolving]
  - Blood glucose increased [Unknown]
  - Blood cholesterol abnormal [Unknown]
